FAERS Safety Report 22628602 (Version 1)
Quarter: 2023Q2

REPORT INFORMATION
  Report Type: Spontaneous
  Country: US (occurrence: None)
  Receive Date: 20230622
  Receipt Date: 20230622
  Transmission Date: 20230721
  Serious: No
  Sender: FDA-Public Use
  Company Number: 2023A134732

PATIENT
  Age: 89 Year

DRUGS (1)
  1. BREZTRI [Suspect]
     Active Substance: BUDESONIDE\FORMOTEROL\GLYCOPYRROLATE
     Dosage: UNKNOWN DOSAGE IN UNKNOWN FREQUENCY

REACTIONS (7)
  - Dyspnoea [Recovering/Resolving]
  - Pyrexia [Unknown]
  - Illness [Unknown]
  - Gait disturbance [Unknown]
  - Bronchitis [Not Recovered/Not Resolved]
  - Cough [Unknown]
  - Pneumonia [Unknown]

NARRATIVE: CASE EVENT DATE: 20220801
